FAERS Safety Report 17526640 (Version 2)
Quarter: 2020Q1

REPORT INFORMATION
  Report Type: Spontaneous
  Country: JP (occurrence: JP)
  Receive Date: 20200311
  Receipt Date: 20200313
  Transmission Date: 20200409
  Serious: Yes (Other)
  Sender: FDA-Public Use
  Company Number: NVSJ2020JP000768

PATIENT
  Sex: Female

DRUGS (3)
  1. NEORAL [Suspect]
     Active Substance: CYCLOSPORINE
     Indication: DERMATOMYOSITIS
     Dosage: 3 MG/KG
     Route: 048
  2. PREDNISOLONE. [Concomitant]
     Active Substance: PREDNISOLONE
     Indication: DERMATOMYOSITIS
     Dosage: 1 MG/KG
     Route: 065
  3. CYCLOPHOSPHAMIDE MONOHYDRATE [Concomitant]
     Active Substance: CYCLOPHOSPHAMIDE
     Indication: DERMATOMYOSITIS
     Dosage: 500 MG/M2
     Route: 042

REACTIONS (8)
  - Renal impairment [Unknown]
  - Blood bilirubin increased [Unknown]
  - Haemolytic anaemia [Unknown]
  - Off label use [Unknown]
  - Thrombotic microangiopathy [Unknown]
  - Thrombotic thrombocytopenic purpura [Unknown]
  - Platelet count decreased [Recovering/Resolving]
  - Psychiatric symptom [Unknown]
